FAERS Safety Report 21772857 (Version 2)
Quarter: 2023Q1

REPORT INFORMATION
  Report Type: Spontaneous
  Country: US (occurrence: US)
  Receive Date: 20221223
  Receipt Date: 20230130
  Transmission Date: 20230418
  Serious: No
  Sender: FDA-Public Use
  Company Number: US-PFIZER INC-PV202200110220

PATIENT
  Age: 90 Year
  Sex: Male

DRUGS (4)
  1. TRAZIMERA [Suspect]
     Active Substance: TRASTUZUMAB-QYYP
     Indication: Malignant neoplasm of renal pelvis
     Dosage: 270 MG (D1 (270 MG LOADING DOSE), D8 (130 MG), D15 (130 MG) Q21D)
  2. TRAZIMERA [Suspect]
     Active Substance: TRASTUZUMAB-QYYP
     Dosage: 130 MG (D1 (270 MG LOADING DOSE). D8 (130 MG) D15 (130 MG) Q21D)
  3. TRAZIMERA [Suspect]
     Active Substance: TRASTUZUMAB-QYYP
     Dosage: 130 MG (D1 (270 MG LOADING DOSE), D8 (130 MG), D15 (130 MG) Q21D)
  4. TRAZIMERA [Suspect]
     Active Substance: TRASTUZUMAB-QYYP
     Dosage: 150 MG, (150 MG SDV 20 ML)

REACTIONS (2)
  - Off label use [Unknown]
  - Neoplasm progression [Unknown]
